FAERS Safety Report 20932720 (Version 1)
Quarter: 2022Q2

REPORT INFORMATION
  Report Type: Spontaneous
  Country: US (occurrence: US)
  Receive Date: 20220608
  Receipt Date: 20220608
  Transmission Date: 20220720
  Serious: No
  Sender: FDA-Public Use
  Company Number: US-PFIZER INC-202200807066

PATIENT
  Age: 65 Year
  Sex: Male

DRUGS (1)
  1. INLYTA [Suspect]
     Active Substance: AXITINIB
     Dosage: 1 DF, 1X/DAY (TAKE 1 TABLET ONCE DAILY)
     Dates: start: 201907

REACTIONS (5)
  - Hypertension [Recovered/Resolved]
  - Oral pain [Unknown]
  - Lip pain [Unknown]
  - Glossodynia [Unknown]
  - Condition aggravated [Unknown]
